FAERS Safety Report 9982836 (Version 1)
Quarter: 2014Q1

REPORT INFORMATION
  Report Type: Report from Study
  Country: US (occurrence: US)
  Receive Date: 20140307
  Receipt Date: 20140307
  Transmission Date: 20141002
  Serious: No
  Sender: FDA-Public Use
  Company Number: US-ABBVIE-13P-163-1181192-00

PATIENT
  Age: 60 Year
  Sex: Male

DRUGS (11)
  1. HUMIRA [Suspect]
     Indication: COLITIS ULCERATIVE
     Dates: start: 20130920
  2. KLOR-CON [Concomitant]
     Indication: PRODUCT USED FOR UNKNOWN INDICATION
  3. HYDROCODONE/ACETAMINOPHEN [Concomitant]
     Indication: PAIN
     Dosage: 10-325 MG
  4. HYDROCODONE/ACETAMINOPHEN [Concomitant]
     Indication: COLITIS ULCERATIVE
  5. AZATHIOPRINE [Concomitant]
     Indication: COLITIS ULCERATIVE
  6. WELCHOL [Concomitant]
     Indication: DIARRHOEA
  7. PAXIL [Concomitant]
     Indication: DEPRESSION
     Dates: start: 20130911
  8. PAXIL [Concomitant]
     Indication: PANIC ATTACK
  9. ADVAIR [Concomitant]
     Indication: EMPHYSEMA
  10. ALBUTEROL [Concomitant]
     Indication: EMPHYSEMA
  11. TUDORZA PRESSAIR [Concomitant]
     Indication: EMPHYSEMA

REACTIONS (6)
  - Fatigue [Not Recovered/Not Resolved]
  - Hypersomnia [Not Recovered/Not Resolved]
  - Haematochezia [Not Recovered/Not Resolved]
  - Abdominal pain [Not Recovered/Not Resolved]
  - Influenza like illness [Not Recovered/Not Resolved]
  - Headache [Not Recovered/Not Resolved]
